FAERS Safety Report 5522583-0 (Version None)
Quarter: 2007Q4

REPORT INFORMATION
  Report Type: 
  Country: None (occurrence: None)
  Receive Date: 20071120
  Receipt Date: 20071108
  Transmission Date: 20080405
  Serious: Yes (Other)
  Sender: FDA-Public Use
  Company Number: GB-PFIZER INC-2007094621

PATIENT
  Age: 15 Year
  Sex: Male
  Weight: 63 kg

DRUGS (8)
  1. VORICONAZOLE [Suspect]
     Indication: ANTIFUNGAL PROPHYLAXIS
     Dosage: DAILY DOSE:300
     Route: 048
     Dates: start: 20070510, end: 20070701
  2. ACYCLOVIR [Concomitant]
     Indication: ANTIFUNGAL PROPHYLAXIS
     Dosage: DAILY DOSE:400MG
     Route: 048
     Dates: start: 20070510
  3. CAMPATH [Concomitant]
     Indication: ORGAN TRANSPLANT
  4. CIDOFOVIR [Concomitant]
     Indication: VIRAL INFECTION
  5. CYCLOSPORINE [Concomitant]
     Indication: PROPHYLAXIS AGAINST GRAFT VERSUS HOST DISEASE
     Dosage: DAILY DOSE:100MG
     Route: 048
  6. DOMPERIDONE [Concomitant]
     Dosage: DAILY DOSE:10MG
     Route: 048
  7. METOCLOPRAMIDE [Concomitant]
     Dosage: DAILY DOSE:10MG
     Route: 048
  8. OMEPRAZOLE [Concomitant]
     Dosage: DAILY DOSE:40MG
     Route: 048

REACTIONS (3)
  - PHOTOSENSITIVITY REACTION [None]
  - RASH [None]
  - SLEEP DISORDER [None]
